FAERS Safety Report 6722099-X (Version None)
Quarter: 2010Q2

REPORT INFORMATION
  Report Type: 
  Country: None (occurrence: None)
  Receive Date: 20100512
  Receipt Date: 20100504
  Transmission Date: 20101027
  Serious: Yes (Hospitalization)
  Sender: FDA-Public Use
  Company Number: US-CUBIST-2010S1000221

PATIENT
  Age: 81 Year
  Sex: Female
  Weight: 82 kg

DRUGS (23)
  1. CUBICIN [Suspect]
     Indication: CENTRAL NERVOUS SYSTEM INFECTION
     Route: 042
     Dates: start: 20091006, end: 20091016
  2. CUBICIN [Suspect]
     Route: 042
     Dates: start: 20091006, end: 20091016
  3. CEFEPIME [Concomitant]
     Indication: WOUND INFECTION
     Route: 042
     Dates: start: 20091006, end: 20091008
  4. IRBESARTAN [Concomitant]
     Indication: DRUG USE FOR UNKNOWN INDICATION
     Route: 048
  5. ACETAMINOPHEN W/ PROPOXYPHENE HCL [Concomitant]
     Indication: DRUG USE FOR UNKNOWN INDICATION
     Route: 048
  6. CALCIUM CARBONATE W/VITAMIN D NOS [Concomitant]
     Indication: DRUG USE FOR UNKNOWN INDICATION
  7. CALCIUM CARBONATE W/VITAMIN D NOS [Concomitant]
  8. INSULIN HUMAN [Concomitant]
     Indication: DRUG USE FOR UNKNOWN INDICATION
  9. SODIUM CHLORIDE [Concomitant]
     Indication: DRUG USE FOR UNKNOWN INDICATION
  10. BETHANECHOL CHLORIDE [Concomitant]
     Indication: DRUG USE FOR UNKNOWN INDICATION
  11. HEPARIN SODIUM [Concomitant]
     Indication: DRUG USE FOR UNKNOWN INDICATION
  12. AMLODIPINE BESYLATE [Concomitant]
     Indication: DRUG USE FOR UNKNOWN INDICATION
  13. FERROUS SULFATE TAB [Concomitant]
     Indication: DRUG USE FOR UNKNOWN INDICATION
  14. TAMSULOSIN HYDROCHLORIDE [Concomitant]
     Indication: DRUG USE FOR UNKNOWN INDICATION
  15. MAGNESIUM CITRATE [Concomitant]
     Indication: DRUG USE FOR UNKNOWN INDICATION
  16. MAGNESIUM HYDROXIDE TAB [Concomitant]
     Indication: DRUG USE FOR UNKNOWN INDICATION
  17. MULTI-VITAMINS [Concomitant]
     Indication: DRUG USE FOR UNKNOWN INDICATION
  18. PROMETHAZINE HCL [Concomitant]
     Indication: DRUG USE FOR UNKNOWN INDICATION
  19. OMEPRAZOLE [Concomitant]
     Indication: DRUG USE FOR UNKNOWN INDICATION
  20. ACETAMINOPHEN [Concomitant]
     Indication: DRUG USE FOR UNKNOWN INDICATION
  21. CIPROFLOXACIN [Concomitant]
     Indication: DRUG USE FOR UNKNOWN INDICATION
  22. SENNOSIDE /00571902/ [Concomitant]
     Indication: DRUG USE FOR UNKNOWN INDICATION
  23. ALPRAZOLAM [Concomitant]
     Indication: DRUG USE FOR UNKNOWN INDICATION

REACTIONS (2)
  - EOSINOPHILIC PNEUMONIA [None]
  - WEANING FAILURE [None]
